FAERS Safety Report 8920578 (Version 6)
Quarter: 2013Q1

REPORT INFORMATION
  Report Type: Spontaneous
  Country: US (occurrence: US)
  Receive Date: 20121121
  Receipt Date: 20130111
  Transmission Date: 20140127
  Serious: No
  Sender: FDA-Public Use
  Company Number: US-009507513-1211USA005020

PATIENT
  Age: 24 Year
  Sex: Female
  Weight: 76.19 kg

DRUGS (1)
  1. IMPLANON [Suspect]
     Indication: CONTRACEPTION
     Dosage: UNK
     Dates: start: 20120110

REACTIONS (4)
  - Menstruation irregular [Not Recovered/Not Resolved]
  - Metrorrhagia [Not Recovered/Not Resolved]
  - Mood altered [Not Recovered/Not Resolved]
  - Medical device complication [Unknown]
